FAERS Safety Report 23882059 (Version 1)
Quarter: 2024Q2

REPORT INFORMATION
  Report Type: Spontaneous
  Country: US (occurrence: US)
  Receive Date: 20240521
  Receipt Date: 20240521
  Transmission Date: 20240715
  Serious: No
  Sender: FDA-Public Use
  Company Number: US-BRISTOL-MYERS SQUIBB COMPANY-2024-075349

PATIENT
  Age: 67 Year
  Sex: Female

DRUGS (1)
  1. MAVACAMTEN [Suspect]
     Active Substance: MAVACAMTEN
     Indication: Hypertrophic cardiomyopathy
     Dosage: DOSE : 5 MG;     FREQ : 5 MG ONCE A DAY
     Route: 048
     Dates: start: 202311

REACTIONS (1)
  - Cardiac ventricular disorder [Unknown]

NARRATIVE: CASE EVENT DATE: 20240501
